FAERS Safety Report 6205042-1 (Version None)
Quarter: 2009Q2

REPORT INFORMATION
  Report Type: 
  Country: None (occurrence: None)
  Receive Date: 20090527
  Receipt Date: 20090217
  Transmission Date: 20091009
  Serious: No
  Sender: FDA-Public Use
  Company Number: US-ABBOTT-09P-163-0558141-00

PATIENT
  Sex: Male

DRUGS (17)
  1. SIMCOR [Suspect]
     Indication: BLOOD CHOLESTEROL INCREASED
     Dosage: 500/20
     Dates: start: 20090202
  2. CYMBALTA [Concomitant]
     Indication: DRUG USE FOR UNKNOWN INDICATION
  3. FUROSEMIDE [Concomitant]
     Indication: DRUG USE FOR UNKNOWN INDICATION
  4. LISINOPRIL [Concomitant]
     Indication: DRUG USE FOR UNKNOWN INDICATION
  5. TRAZODONE HCL [Concomitant]
     Indication: DRUG USE FOR UNKNOWN INDICATION
  6. OMEPRAZOLE [Concomitant]
     Indication: DRUG USE FOR UNKNOWN INDICATION
  7. METOPROLOL [Concomitant]
     Indication: DRUG USE FOR UNKNOWN INDICATION
  8. NEURONTIN [Concomitant]
     Indication: DRUG USE FOR UNKNOWN INDICATION
  9. ASPIRIN [Concomitant]
     Indication: DRUG USE FOR UNKNOWN INDICATION
     Dosage: 81 X 2
  10. LANTUS [Concomitant]
     Indication: DRUG USE FOR UNKNOWN INDICATION
  11. MVT [Concomitant]
     Indication: DRUG USE FOR UNKNOWN INDICATION
  12. GARLIC [Concomitant]
     Indication: DRUG USE FOR UNKNOWN INDICATION
  13. FLAX SEED OIL [Concomitant]
     Indication: DRUG USE FOR UNKNOWN INDICATION
  14. GREEN TEA EXTRACT [Concomitant]
     Indication: DRUG USE FOR UNKNOWN INDICATION
  15. ZINC [Concomitant]
     Indication: DRUG USE FOR UNKNOWN INDICATION
  16. CINNAMON [Concomitant]
     Indication: DRUG USE FOR UNKNOWN INDICATION
  17. BEE POLLEN COMPLEX [Concomitant]
     Indication: DRUG USE FOR UNKNOWN INDICATION

REACTIONS (1)
  - FLUSHING [None]
